FAERS Safety Report 4494467-0 (Version None)
Quarter: 2004Q4

REPORT INFORMATION
  Report Type: 
  Country: None (occurrence: None)
  Receive Date: 20041102
  Receipt Date: 20041019
  Transmission Date: 20050328
  Serious: Yes (Other)
  Sender: FDA-Public Use
  Company Number: 2004241399HK

PATIENT
  Age: 17 Year
  Sex: Female

DRUGS (3)
  1. DELTA-CORTEF [Suspect]
     Indication: SEVERE ACUTE RESPIRATORY SYNDROME
  2. SOLU-MEDROL [Suspect]
     Indication: SEVERE ACUTE RESPIRATORY SYNDROME
  3. CORTEF [Suspect]
     Indication: SEVERE ACUTE RESPIRATORY SYNDROME

REACTIONS (1)
  - OSTEONECROSIS [None]
